FAERS Safety Report 8387425-7 (Version None)
Quarter: 2012Q2

REPORT INFORMATION
  Report Type: 
  Country: None (occurrence: None)
  Receive Date: 20120525
  Receipt Date: 20120523
  Transmission Date: 20120825
  Serious: Yes (Death, Hospitalization)
  Sender: FDA-Public Use
  Company Number: RO-NOVOPROD-351708

PATIENT
  Age: 63 Year
  Sex: Male
  Weight: 101 kg

DRUGS (1)
  1. VICTOZA [Suspect]
     Indication: TYPE 2 DIABETES MELLITUS
     Dosage: 1.8 MG, QD
     Route: 058
     Dates: start: 20111031, end: 20120514

REACTIONS (7)
  - RENAL HAEMORRHAGE [None]
  - METABOLIC ACIDOSIS [None]
  - GASTROINTESTINAL NECROSIS [None]
  - INTESTINAL ISCHAEMIA [None]
  - CONGENITAL CYSTIC KIDNEY DISEASE [None]
  - CARDIO-RESPIRATORY ARREST [None]
  - RENAL FAILURE ACUTE [None]
